FAERS Safety Report 8608346 (Version 2)
Quarter: 2013Q2

REPORT INFORMATION
  Report Type: Spontaneous
  Country: US (occurrence: US)
  Receive Date: 20120611
  Receipt Date: 20130617
  Transmission Date: 20140414
  Serious: Yes (Hospitalization)
  Sender: FDA-Public Use
  Company Number: US-ASTRAZENECA-2012SE35313

PATIENT
  Age: 24534 Day
  Sex: Female
  Weight: 74.8 kg

DRUGS (19)
  1. NEXIUM [Suspect]
     Indication: DYSPEPSIA
     Dosage: ONCE PER DAY
     Route: 048
  2. NEXIUM [Suspect]
     Indication: DYSPEPSIA
     Route: 048
     Dates: start: 20060513
  3. TUMS [Concomitant]
     Dosage: AS NEEDED
  4. ZANTAC [Concomitant]
     Dosage: ONCE PER DAY OR AS NEEDED
  5. TOPROL [Concomitant]
     Indication: BLOOD PRESSURE
  6. AMLODIPINE [Concomitant]
  7. KLOR-CON [Concomitant]
  8. LASIX [Concomitant]
  9. MULTIVITAMINS [Concomitant]
  10. B-COMPLEX [Concomitant]
  11. VITAMIN D [Concomitant]
  12. BABY ASPIRIN [Concomitant]
  13. CARDIZEM [Concomitant]
  14. ZOCOR [Concomitant]
  15. CLARINEX [Concomitant]
  16. CELEBREX [Concomitant]
  17. CALTRATE [Concomitant]
  18. ACTONEL [Concomitant]
  19. COD LIVER OIL [Concomitant]

REACTIONS (5)
  - Tibia fracture [Unknown]
  - Fibula fracture [Unknown]
  - Fall [Unknown]
  - Osteoporosis [Unknown]
  - Cataract [Unknown]
